FAERS Safety Report 13012941 (Version 4)
Quarter: 2018Q1

REPORT INFORMATION
  Report Type: Report from Study
  Country: US (occurrence: US)
  Receive Date: 20161209
  Receipt Date: 20180308
  Transmission Date: 20180508
  Serious: Yes (Congenital Anomaly, Other)
  Sender: FDA-Public Use
  Company Number: US-VIIV HEALTHCARE LIMITED-US2016GSK181911

PATIENT

DRUGS (1)
  1. DOLUTEGRAVIR [Suspect]
     Active Substance: DOLUTEGRAVIR
     Indication: HIV INFECTION
     Dosage: 50 MG, QD
     Route: 064
     Dates: start: 20150116

REACTIONS (10)
  - Staphylococcal sepsis [Unknown]
  - Cystic fibrosis [Unknown]
  - Anaemia [Unknown]
  - Bronchiolitis [Unknown]
  - Respiratory failure [Unknown]
  - Congenital cystic kidney disease [Unknown]
  - Malnutrition [Unknown]
  - Pleural effusion [Unknown]
  - Renal dysplasia [Unknown]
  - Pneumonia [Unknown]
